FAERS Safety Report 9173845 (Version 1)
Quarter: 2013Q1

REPORT INFORMATION
  Report Type: Spontaneous
  Country: GB (occurrence: None)
  Receive Date: 20130315
  Receipt Date: 20130315
  Transmission Date: 20140127
  Serious: Yes (Other)
  Sender: FDA-Public Use
  Company Number: 2013-03300

PATIENT
  Age: 54 Year
  Sex: Female

DRUGS (5)
  1. PROPRANOLOL HYDROCHLORIDE [Suspect]
     Indication: BASEDOW^S DISEASE
     Route: 048
     Dates: start: 201212
  2. ENALAPRIL MALEATE (ENALAPRIL MALEATE) [Concomitant]
  3. TRAMADOL HYDROCHLORIDE (TRAMADOL HYDROCHLORIDE) [Concomitant]
  4. BENDROFLUMETHIAZIDE (BENDROFLUMETHIAZIDE) [Concomitant]
  5. CARBIMAZOLE (CARBIMAZOLE) [Concomitant]

REACTIONS (3)
  - Constipation [None]
  - Abdominal discomfort [None]
  - Faeces hard [None]
